FAERS Safety Report 16850728 (Version 1)
Quarter: 2019Q3

REPORT INFORMATION
  Report Type: Spontaneous
  Country: US (occurrence: US)
  Receive Date: 20190925
  Receipt Date: 20190925
  Transmission Date: 20191005
  Serious: No
  Sender: FDA-Public Use
  Company Number: US-THERAPEUTICSMD-2019TMD01842

PATIENT
  Age: 62 Year
  Sex: Female
  Weight: 58.96 kg

DRUGS (5)
  1. ARMOUR THYROID [Concomitant]
     Active Substance: THYROID, PORCINE
  2. PROGESTERONE. [Concomitant]
     Active Substance: PROGESTERONE
     Dosage: 200 MG; 1X/DAY FOR 7 DAYS AT THE BEGINNING OF EVERY MONTH
  3. IMVEXXY [Suspect]
     Active Substance: ESTRADIOL
     Indication: VULVOVAGINAL DRYNESS
     Dosage: 4 ?G, AT BEDTIME
     Route: 067
     Dates: start: 20190707, end: 20190707
  4. TESTOSTERONE COMPOUNDED FORMULA [Suspect]
     Active Substance: TESTOSTERONE
     Dosage: UNK
     Dates: start: 20190707, end: 20190708
  5. TESTOSTERONE COMPOUNDED FORMULA [Suspect]
     Active Substance: TESTOSTERONE
     Dosage: UNK
     Dates: start: 2019, end: 20190706

REACTIONS (3)
  - Off label use [Recovered/Resolved]
  - Headache [Recovered/Resolved]
  - Migraine with aura [Recovered/Resolved]

NARRATIVE: CASE EVENT DATE: 20190707
